FAERS Safety Report 24648006 (Version 1)
Quarter: 2024Q4

REPORT INFORMATION
  Report Type: Spontaneous
  Country: CA (occurrence: CA)
  Receive Date: 20241121
  Receipt Date: 20241121
  Transmission Date: 20250115
  Serious: Yes (Other)
  Sender: BAXTER
  Company Number: CA-BAXTER-2024BAX028014

PATIENT
  Age: 72 Year
  Sex: Female

DRUGS (9)
  1. ACETAMINOPHEN [Suspect]
     Active Substance: ACETAMINOPHEN
     Dosage: (DOSAGE FORM: NOT SPECIFIED) UNSPECIFIED DOSE AND FREQUENCY
     Route: 065
  2. VITAMIN C [Suspect]
     Active Substance: ASCORBIC ACID
     Dosage: (DOSAGE FORM: NOT SPECIFIED) UNSPECIFIED DOSE AND FREQUENCY
     Route: 065
  3. CHOLECALCIFEROL [Suspect]
     Active Substance: CHOLECALCIFEROL
     Dosage: (DOSAGE FORM: NOT SPECIFIED) UNSPECIFIED DOSE AND FREQUENCY
     Route: 065
  4. ESCITALOPRAM [Suspect]
     Active Substance: ESCITALOPRAM OXALATE
     Dosage: (DOSAGE FORM: TABLETS) UNSPECIFIED DOSE AND FREQUENCY
     Route: 065
  5. HYDROMORPHONE [Suspect]
     Active Substance: HYDROMORPHONE
     Dosage: (DOSAGE FORM: NOT SPECIFIED) UNSPECIFIED DOSE AND FREQUENCY
     Route: 065
  6. LEVOTHYROXINE SODIUM [Suspect]
     Active Substance: LEVOTHYROXINE SODIUM
     Dosage: (DOSAGE FORM: NOT SPECIFIED) UNSPECIFIED DOSE AND FREQUENCY
     Route: 065
  7. PANTOPRAZOLE [Suspect]
     Active Substance: PANTOPRAZOLE
     Dosage: (DOSAGE FORM: NOT SPECIFIED) UNSPECIFIED DOSE AND FREQUENCY
     Route: 065
  8. PREGABALIN [Suspect]
     Active Substance: PREGABALIN
     Dosage: (DOSAGE FORM: CAPSULES) UNSPECIFIED DOSE AND FREQUENCY
     Route: 065
  9. ALBUTEROL [Suspect]
     Active Substance: ALBUTEROL
     Dosage: (DOSAGE FORM: NOT SPECIFIED) UNSPECIFIED DOSE AND FREQUENCY
     Route: 065

REACTIONS (1)
  - Febrile neutropenia [Unknown]
